FAERS Safety Report 12953386 (Version 1)
Quarter: 2016Q4

REPORT INFORMATION
  Report Type: Spontaneous
  Country: US (occurrence: US)
  Receive Date: 20161117
  Receipt Date: 20161117
  Transmission Date: 20170207
  Serious: Yes (Other)
  Sender: FDA-Public Use
  Company Number: US-PFIZER INC-2016529479

PATIENT
  Sex: Male

DRUGS (2)
  1. DOFETILIDE. [Suspect]
     Active Substance: DOFETILIDE
     Dosage: UNK
  2. DOFETILIDE. [Suspect]
     Active Substance: DOFETILIDE
     Dosage: UNK

REACTIONS (2)
  - Asthenia [Unknown]
  - Atrial fibrillation [Unknown]
